FAERS Safety Report 9109962 (Version 2)
Quarter: 2013Q2

REPORT INFORMATION
  Report Type: Spontaneous
  Country: DE (occurrence: DE)
  Receive Date: 20130222
  Receipt Date: 20130508
  Transmission Date: 20140414
  Serious: Yes (Other)
  Sender: FDA-Public Use
  Company Number: DE-BAYER-2013-020207

PATIENT
  Age: 25 Year
  Sex: Female

DRUGS (1)
  1. PETIBELLE [Suspect]
     Indication: ORAL CONTRACEPTION
     Dosage: 1 DF, QD
     Route: 048
     Dates: start: 2005

REACTIONS (2)
  - Hypertension [Recovered/Resolved]
  - Blood aldosterone increased [Recovered/Resolved]
